FAERS Safety Report 5754328-3 (Version None)
Quarter: 2008Q2

REPORT INFORMATION
  Report Type: 
  Country: None (occurrence: None)
  Receive Date: 20080530
  Receipt Date: 20080219
  Transmission Date: 20081010
  Serious: No
  Sender: FDA-Public Use
  Company Number: US-ABBOTT-08P-163-0439436-00

PATIENT
  Sex: Male
  Weight: 113.6 kg

DRUGS (5)
  1. GENGRAF [Suspect]
     Indication: PSORIASIS
     Route: 048
     Dates: start: 20080201
  2. EFALIZUMAB [Suspect]
     Indication: PSORIASIS
  3. MONTELUKAST SODIUM [Concomitant]
     Indication: DRUG USE FOR UNKNOWN INDICATION
  4. SERETIDE [Concomitant]
     Indication: DRUG USE FOR UNKNOWN INDICATION
  5. SALBUTAMOL SULFATE [Concomitant]
     Indication: DRUG USE FOR UNKNOWN INDICATION

REACTIONS (2)
  - RASH MACULAR [None]
  - STOMACH DISCOMFORT [None]
